FAERS Safety Report 10978586 (Version 3)
Quarter: 2015Q3

REPORT INFORMATION
  Report Type: Spontaneous
  Country: JP (occurrence: JP)
  Receive Date: 20150402
  Receipt Date: 20150709
  Transmission Date: 20151125
  Serious: Yes (Other)
  Sender: FDA-Public Use
  Company Number: JP-JNJFOC-20150400982

PATIENT
  Age: 65 Year
  Sex: Male
  Weight: 99.6 kg

DRUGS (8)
  1. CANAGLU [Suspect]
     Active Substance: CANAGLIFLOZIN
     Indication: TYPE 2 DIABETES MELLITUS
     Route: 048
     Dates: start: 20141106
  2. DIOVAN [Concomitant]
     Active Substance: VALSARTAN
     Indication: GOUT
     Route: 065
     Dates: start: 20090423
  3. LENDORMIN [Concomitant]
     Active Substance: BROTIZOLAM
     Indication: GOUT
     Route: 048
     Dates: start: 20091008
  4. ACTOS [Concomitant]
     Active Substance: PIOGLITAZONE HYDROCHLORIDE
     Indication: TYPE 2 DIABETES MELLITUS
     Route: 048
     Dates: start: 20100902
  5. AMARYL [Concomitant]
     Active Substance: GLIMEPIRIDE
     Indication: TYPE 2 DIABETES MELLITUS
     Route: 048
     Dates: start: 20081211
  6. URALYT-U [Concomitant]
     Active Substance: POTASSIUM CITRATE\TRISODIUM CITRATE DIHYDRATE
     Indication: GOUT
     Route: 048
  7. URINORM [Concomitant]
     Active Substance: BENZBROMARONE
     Indication: GOUT
     Route: 048
  8. GASTER [Concomitant]
     Active Substance: FAMOTIDINE
     Indication: GOUT
     Route: 048

REACTIONS (2)
  - Retinal detachment [Recovering/Resolving]
  - Retinal haemorrhage [Recovering/Resolving]

NARRATIVE: CASE EVENT DATE: 20150106
